FAERS Safety Report 9272002 (Version 1)
Quarter: 2013Q2

REPORT INFORMATION
  Report Type: Spontaneous
  Country: US (occurrence: US)
  Receive Date: 20130506
  Receipt Date: 20130506
  Transmission Date: 20140414
  Serious: No
  Sender: FDA-Public Use
  Company Number: US-009507513-1305USA001306

PATIENT
  Age: 15 Year
  Sex: Female

DRUGS (1)
  1. NEXPLANON [Suspect]
     Indication: CONTRACEPTION
     Dosage: 3 YEAR SUBDERMAL IMPLANT
     Route: 059
     Dates: start: 20130422

REACTIONS (3)
  - Pruritus [Recovering/Resolving]
  - Device expulsion [Recovering/Resolving]
  - Wrong technique in drug usage process [Recovering/Resolving]
